FAERS Safety Report 10098256 (Version 2)
Quarter: 2014Q4

REPORT INFORMATION
  Report Type: Spontaneous
  Country: US (occurrence: US)
  Receive Date: 20140423
  Receipt Date: 20141205
  Transmission Date: 20150528
  Serious: No
  Sender: FDA-Public Use
  Company Number: US-BRISTOL-MYERS SQUIBB COMPANY-20523973

PATIENT
  Age: 67 Year
  Sex: Female

DRUGS (1)
  1. YERVOY [Suspect]
     Active Substance: IPILIMUMAB
     Indication: MALIGNANT MELANOMA

REACTIONS (4)
  - Pruritus [Unknown]
  - Lip oedema [Unknown]
  - Peripheral swelling [Unknown]
  - Rash [Unknown]
